FAERS Safety Report 22637013 (Version 1)
Quarter: 2023Q2

REPORT INFORMATION
  Report Type: Spontaneous
  Country: DE (occurrence: DE)
  Receive Date: 20230626
  Receipt Date: 20230626
  Transmission Date: 20230722
  Serious: Yes (Hospitalization, Other)
  Sender: FDA-Public Use
  Company Number: DE-BRISTOL-MYERS SQUIBB COMPANY-2023-088834

PATIENT
  Age: 75 Year
  Sex: Female

DRUGS (1)
  1. VIDAZA [Suspect]
     Active Substance: AZACITIDINE
     Indication: Myelodysplastic syndrome
     Dosage: DOSE: 3 CYCLES. FREQUENCY: 5-AZACYTIDINE 75, SUBCUTANEOUS DAY 1 TO 4, REPEAT DAY 28
     Route: 058
     Dates: start: 202303

REACTIONS (7)
  - Cardiorenal syndrome [Recovered/Resolved]
  - Prerenal failure [Recovered/Resolved]
  - Cardiac failure [Recovered/Resolved]
  - Congestive hepatopathy [Recovered/Resolved]
  - Escherichia urinary tract infection [Recovered/Resolved]
  - Urinary tract infection enterococcal [Recovered/Resolved]
  - Off label use [Unknown]
